FAERS Safety Report 4327871-1 (Version None)
Quarter: 2004Q1

REPORT INFORMATION
  Report Type: 
  Country: None (occurrence: None)
  Receive Date: 20040325
  Receipt Date: 20040315
  Transmission Date: 20041129
  Serious: Yes (Hospitalization)
  Sender: FDA-Public Use
  Company Number: US-JNJFOC-20040303640

PATIENT
  Age: 44 Year
  Sex: Female

DRUGS (13)
  1. INFLIXIMAB (INFLIXIMAB, RECOMBINANT) LYOPHILIZED POWDER [Suspect]
     Indication: RHEUMATOID ARTHRITIS
     Dosage: INTRAVENOUS
     Route: 042
     Dates: start: 20020925
  2. PREDNISONE [Concomitant]
  3. ARAVA [Concomitant]
  4. PLAQUENIL [Concomitant]
  5. ACETYLSALICYLIC ACID SRT [Concomitant]
  6. TRIAMTERENE (TRIAMTERENE) [Concomitant]
  7. MINOXIDIL [Concomitant]
  8. PROGESTERONE [Concomitant]
  9. PROCRIT (ERYTHROPOIETIN) [Concomitant]
  10. VIOXX [Concomitant]
  11. CALCIUM (CALCIUM) [Concomitant]
  12. IRON (IRON) [Concomitant]
  13. PRENATAL VITAMINS (PRENATAL VITAMINS) [Concomitant]

REACTIONS (1)
  - HERPES ZOSTER [None]
